FAERS Safety Report 18691208 (Version 1)
Quarter: 2021Q1

REPORT INFORMATION
  Report Type: Spontaneous
  Country: CN (occurrence: CN)
  Receive Date: 20210101
  Receipt Date: 20210101
  Transmission Date: 20210419
  Serious: Yes (Other)
  Sender: FDA-Public Use
  Company Number: CN-LUPIN PHARMACEUTICALS INC.-2020-07005

PATIENT
  Age: 10 Month
  Sex: Female

DRUGS (5)
  1. CAPTOPRIL. [Concomitant]
     Active Substance: CAPTOPRIL
     Indication: BARTTER^S SYNDROME
     Dosage: UNK
     Route: 065
  2. POTASSIUM CHLORIDE. [Suspect]
     Active Substance: POTASSIUM CHLORIDE
     Indication: BARTTER^S SYNDROME
     Dosage: UNK
     Route: 042
  3. SPIRONOLACTONE. [Concomitant]
     Active Substance: SPIRONOLACTONE
     Indication: BARTTER^S SYNDROME
     Dosage: 60 MILLIGRAM, QD
     Route: 065
  4. INDOMETACIN [Concomitant]
     Active Substance: INDOMETHACIN
     Indication: BARTTER^S SYNDROME
     Dosage: ENTERIC COATED TABLETS OF 1?2 MG/KG/DAY
     Route: 065
  5. POTASSIUM CHLORIDE. [Suspect]
     Active Substance: POTASSIUM CHLORIDE
     Dosage: UNK UNK, QD, 4?6 MMOL/KG; SUSTAINED RELEASE TABLETS
     Route: 048

REACTIONS (1)
  - Drug ineffective [Unknown]
